FAERS Safety Report 10570168 (Version 3)
Quarter: 2014Q4

REPORT INFORMATION
  Report Type: Spontaneous
  Country: IT (occurrence: None)
  Receive Date: 20141105
  Receipt Date: 20141119
  Transmission Date: 20150529
  Serious: Yes (Other)
  Sender: FDA-Public Use
  Company Number: 2603944

PATIENT
  Age: 63 Year
  Sex: Female
  Weight: 56 kg

DRUGS (3)
  1. TRASTUZUMAB [Concomitant]
     Active Substance: TRASTUZUMAB
  2. DOCETAXEL. [Suspect]
     Active Substance: DOCETAXEL
     Indication: HETEROPLASIA
     Dosage: 75 MG/M 2 MILLIGRAMS(S)/SQ. METER (1 DAY), INTRAVENOUS (NOT OTHERWISE SPECIFIED)??11:20 AM  ?11:20 AM ?
     Route: 042
     Dates: start: 20140924, end: 20140924
  3. CYCLOPHOSPHAMIDE. [Concomitant]
     Active Substance: CYCLOPHOSPHAMIDE

REACTIONS (3)
  - Hypotension [None]
  - Hyperhidrosis [None]
  - Malaise [None]

NARRATIVE: CASE EVENT DATE: 20140924
